FAERS Safety Report 15679385 (Version 1)
Quarter: 2018Q4

REPORT INFORMATION
  Report Type: Spontaneous
  Country: CN (occurrence: CN)
  Receive Date: 20181203
  Receipt Date: 20181203
  Transmission Date: 20190205
  Serious: Yes (Other)
  Sender: FDA-Public Use
  Company Number: CN-LUPIN PHARMACEUTICALS INC.-2018-08252

PATIENT
  Age: 83 Year
  Sex: Male

DRUGS (5)
  1. GENTAMICIN. [Concomitant]
     Active Substance: GENTAMICIN
     Indication: PNEUMONIA
     Dosage: UNK
     Route: 065
  2. LINEZOLID. [Suspect]
     Active Substance: LINEZOLID
     Indication: INFECTIOUS PLEURAL EFFUSION
     Dosage: 600 MG, BID
     Route: 042
  3. BIAPENEM [Concomitant]
     Active Substance: BIAPENEM
     Indication: PNEUMONIA
     Dosage: UNK
     Route: 065
  4. PIPERACILLIN/TAZOBACTAM [Concomitant]
     Active Substance: PIPERACILLIN SODIUM\TAZOBACTAM SODIUM
     Indication: PNEUMONIA
     Dosage: UNK
     Route: 065
  5. LINEZOLID. [Suspect]
     Active Substance: LINEZOLID
     Indication: STAPHYLOCOCCAL INFECTION
     Dosage: 600 MG, BID
     Route: 048

REACTIONS (3)
  - Fatigue [Unknown]
  - Aplasia pure red cell [Recovered/Resolved]
  - Dizziness [Unknown]
